FAERS Safety Report 8184865-6 (Version None)
Quarter: 2012Q1

REPORT INFORMATION
  Report Type: 
  Country: None (occurrence: None)
  Receive Date: 20120305
  Receipt Date: 20120228
  Transmission Date: 20120608
  Serious: Yes (Hospitalization, Other)
  Sender: FDA-Public Use
  Company Number: FR-ABBOTT-12P-056-0905469-00

PATIENT
  Sex: Male
  Weight: 50 kg

DRUGS (3)
  1. HUMIRA [Suspect]
     Indication: CROHN'S DISEASE
     Dosage: 80 MG LOADING DOSE
     Route: 058
  2. CORTICOIDS (NOS) [Concomitant]
     Indication: CROHN'S DISEASE
  3. PREDNISOLONE [Concomitant]
     Indication: PRODUCT USED FOR UNKNOWN INDICATION
     Dosage: 20MG DAILY DOSE
     Route: 048

REACTIONS (5)
  - INFECTIOUS PERITONITIS [None]
  - ABDOMINAL ADHESIONS [None]
  - INTESTINAL PERFORATION [None]
  - INTESTINAL OBSTRUCTION [None]
  - GASTROINTESTINAL INFLAMMATION [None]
